FAERS Safety Report 11278109 (Version 1)
Quarter: 2015Q3

REPORT INFORMATION
  Report Type: Spontaneous
  Country: US (occurrence: US)
  Receive Date: 20150717
  Receipt Date: 20150717
  Transmission Date: 20151125
  Serious: Yes (Other)
  Sender: FDA-Public Use
  Company Number: US-ASTRAZENECA-2015SE69053

PATIENT
  Sex: Female

DRUGS (15)
  1. IBRANCE [Concomitant]
     Active Substance: PALBOCICLIB
     Indication: BREAST CANCER METASTATIC
     Dosage: 1 CAPSULE DAILY FOR 21 DAYS AND THEN HOLD FOR 1 WEEK AND THEN RESTART
     Route: 048
     Dates: start: 20150608
  2. MELATONIN [Concomitant]
     Active Substance: MELATONIN
     Indication: IMMUNE SYSTEM DISORDER
     Route: 048
     Dates: start: 20140822
  3. EPAMAX [Concomitant]
     Indication: INFLAMMATION
     Route: 048
     Dates: start: 20150708
  4. EFFEXOR XR [Concomitant]
     Active Substance: VENLAFAXINE HYDROCHLORIDE
     Route: 048
  5. ALOE VERA [Concomitant]
     Active Substance: ALOE VERA LEAF
     Dosage: 60-120 ML DAILY
     Route: 048
  6. VITAMIN D3 [Concomitant]
     Active Substance: CHOLECALCIFEROL
     Dates: start: 20150608
  7. IBUPROFEN. [Concomitant]
     Active Substance: IBUPROFEN
     Dosage: 1 TAB EVERY 4-6 HOURS AS REQUIRED
     Route: 048
  8. MELATONIN [Concomitant]
     Active Substance: MELATONIN
     Indication: ANTIOXIDANT THERAPY
     Route: 048
     Dates: start: 20140822
  9. FEMARA [Concomitant]
     Active Substance: LETROZOLE
     Route: 048
     Dates: start: 20150608
  10. FASLODEX [Suspect]
     Active Substance: FULVESTRANT
     Route: 030
  11. MAITAKE FULL SPECTRUM [Concomitant]
     Indication: SUPPORTIVE CARE
     Dates: start: 20150608
  12. MAGNESIUM CITRATE. [Concomitant]
     Active Substance: MAGNESIUM CITRATE
     Indication: MYALGIA
     Route: 048
     Dates: start: 20150708
  13. MAGNESIUM CITRATE. [Concomitant]
     Active Substance: MAGNESIUM CITRATE
     Indication: ABDOMINAL DISCOMFORT
     Route: 048
     Dates: start: 20150708
  14. MAITAKE FULL SPECTRUM [Concomitant]
     Indication: ILL-DEFINED DISORDER
     Dates: start: 20150608
  15. FLAXSEEDS [Concomitant]
     Dosage: 2-3 TABLE SPOONS; DRINK MINIMUM 64 OZ OF WATER A DAY
     Dates: start: 20150608

REACTIONS (2)
  - Myalgia [Unknown]
  - Breast cancer metastatic [Unknown]
